FAERS Safety Report 5465242-5 (Version None)
Quarter: 2007Q3

REPORT INFORMATION
  Report Type: 
  Country: None (occurrence: None)
  Receive Date: 20070924
  Receipt Date: 20070918
  Transmission Date: 20080115
  Serious: Yes (Death, Other)
  Sender: FDA-Public Use
  Company Number: PHBS2007JP12438

PATIENT
  Age: 84 Year
  Sex: Male
  Weight: 35 kg

DRUGS (5)
  1. NEORAL [Suspect]
     Indication: APLASIA PURE RED CELL
     Dosage: 175 MG/DAY
     Route: 048
     Dates: start: 20070717, end: 20070730
  2. NEORAL [Suspect]
     Dosage: 75 MG/D
     Route: 048
     Dates: start: 20070801
  3. NEORAL [Suspect]
     Dosage: 100 MG/D
     Route: 048
     Dates: start: 20070815
  4. BORRAGINOL-N [Concomitant]
     Indication: HAEMORRHOIDS
     Route: 061
  5. PREDNISOLONE [Concomitant]
     Indication: APLASIA PURE RED CELL
     Dosage: 15 MG/DAY
     Route: 065

REACTIONS (14)
  - ANOREXIA [None]
  - ARTERIOSCLEROSIS OBLITERANS [None]
  - ARTHRALGIA [None]
  - DEATH [None]
  - HAEMATURIA [None]
  - IMMUNOSUPPRESSANT DRUG LEVEL DECREASED [None]
  - IMMUNOSUPPRESSANT DRUG LEVEL INCREASED [None]
  - INFECTION [None]
  - MELAENA [None]
  - OEDEMA PERIPHERAL [None]
  - PAIN [None]
  - PLATELET COUNT DECREASED [None]
  - PURULENT DISCHARGE [None]
  - SKIN DISCOLOURATION [None]
